FAERS Safety Report 10359564 (Version 1)
Quarter: 2014Q3

REPORT INFORMATION
  Report Type: Spontaneous
  Country: US (occurrence: None)
  Receive Date: 20140801
  Receipt Date: 20140801
  Transmission Date: 20150326
  Serious: Yes (Other)
  Sender: FDA-Public Use
  Company Number: None

PATIENT
  Age: 59 Year
  Sex: Female
  Weight: 54.43 kg

DRUGS (2)
  1. DYSPORT [Suspect]
     Active Substance: ABOBOTULINUMTOXINA
     Indication: ILL-DEFINED DISORDER
     Dosage: 1X GIVEN INTO/UNDER THE SKIN
  2. RADIESSE [Suspect]
     Active Substance: TRIBASIC CALCIUM PHOSPHATE
     Indication: SKIN COSMETIC PROCEDURE

REACTIONS (3)
  - Arthralgia [None]
  - Joint swelling [None]
  - Injection site reaction [None]

NARRATIVE: CASE EVENT DATE: 20140729
